FAERS Safety Report 4971973-3 (Version None)
Quarter: 2006Q2

REPORT INFORMATION
  Report Type: 
  Country: None (occurrence: None)
  Receive Date: 20060413
  Receipt Date: 20050426
  Transmission Date: 20061013
  Serious: Yes (Hospitalization, Other)
  Sender: FDA-Public Use
  Company Number: US-MERCK-0504USA04824

PATIENT
  Age: 39 Year
  Sex: Male

DRUGS (2)
  1. VIOXX [Suspect]
     Route: 048
  2. ASPIRIN [Concomitant]
     Route: 065

REACTIONS (19)
  - ALCOHOLISM [None]
  - BURSITIS [None]
  - CEREBRAL ARTERY OCCLUSION [None]
  - CHRONIC OBSTRUCTIVE PULMONARY DISEASE [None]
  - DECREASED APPETITE [None]
  - HYPERCHOLESTEROLAEMIA [None]
  - HYPERHOMOCYSTEINAEMIA [None]
  - HYPERLIPIDAEMIA [None]
  - HYPERTENSION [None]
  - HYPERTENSIVE CRISIS [None]
  - HYPOKALAEMIA [None]
  - INSOMNIA [None]
  - MIGRAINE [None]
  - NECK MASS [None]
  - NICOTINE DEPENDENCE [None]
  - ROTATOR CUFF SYNDROME [None]
  - THALAMIC INFARCTION [None]
  - TRANSIENT ISCHAEMIC ATTACK [None]
  - VENTRICULAR HYPERTROPHY [None]
